FAERS Safety Report 4852602-6 (Version None)
Quarter: 2005Q4

REPORT INFORMATION
  Report Type: 
  Country: None (occurrence: None)
  Receive Date: 20051125
  Receipt Date: 20050913
  Transmission Date: 20060501
  Serious: Yes (Hospitalization, Other)
  Sender: FDA-Public Use
  Company Number: 2005109308

PATIENT
  Age: 65 Year
  Sex: Male
  Weight: 63.05 kg

DRUGS (11)
  1. TIKOSYN [Suspect]
     Indication: ATRIAL FLUTTER
     Dates: start: 20050101
  2. DILTIAZEM [Suspect]
     Indication: HEART RATE
     Dates: start: 20050728
  3. AMOXICILLIN [Suspect]
     Indication: URINARY TRACT INFECTION
     Dates: start: 20050701
  4. PROTONIX [Concomitant]
  5. COLCHICUM JTL LIQ [Concomitant]
  6. ASPIRIN [Concomitant]
  7. GLUCOSAMINE W/CHONDROITIN SULFATES (ASCORBIC ACID, CHONDROITIN SULFATE [Concomitant]
  8. FISH OIL (FISH OIL) [Concomitant]
  9. MULTIVITAMIN [Concomitant]
  10. CALCIUM (CALCIUM) [Concomitant]
  11. COUMADIN [Concomitant]

REACTIONS (2)
  - DRUG INEFFECTIVE [None]
  - URINARY TRACT INFECTION [None]
